FAERS Safety Report 4719633-8 (Version None)
Quarter: 2005Q3

REPORT INFORMATION
  Report Type: 
  Country: None (occurrence: None)
  Receive Date: 20050721
  Receipt Date: 20040413
  Transmission Date: 20060218
  Serious: No
  Sender: FDA-Public Use
  Company Number: US-GLAXOSMITHKLINE-A0508252A

PATIENT
  Sex: Male
  Weight: 103.6 kg

DRUGS (6)
  1. AVANDIA [Suspect]
     Route: 048
  2. ALTACE [Concomitant]
     Indication: HYPERTENSION
  3. AMARYL [Concomitant]
     Dosage: 4MG VARIABLE DOSE
     Route: 048
     Dates: start: 20020201
  4. INSULIN [Concomitant]
     Indication: DRUG USE FOR UNKNOWN INDICATION
  5. VERELAN [Concomitant]
     Indication: HYPERTENSION
     Dosage: 300MG AT NIGHT
  6. DIOVAN HCT [Concomitant]
     Indication: DRUG USE FOR UNKNOWN INDICATION

REACTIONS (1)
  - ADVERSE EVENT [None]
